FAERS Safety Report 4893625-0 (Version None)
Quarter: 2006Q1

REPORT INFORMATION
  Report Type: 
  Country: None (occurrence: None)
  Receive Date: 20060127
  Receipt Date: 20060120
  Transmission Date: 20060701
  Serious: Yes (Other)
  Sender: FDA-Public Use
  Company Number: GB-SANOFI-SYNTHELABO-A01200600602

PATIENT
  Sex: Male

DRUGS (1)
  1. ELOXATIN [Suspect]
     Dosage: UNKNOWN
     Route: 042

REACTIONS (2)
  - LARYNGOSPASM [None]
  - THROAT TIGHTNESS [None]
